FAERS Safety Report 7893887-1 (Version None)
Quarter: 2011Q4

REPORT INFORMATION
  Report Type: 
  Country: None (occurrence: None)
  Receive Date: 20111104
  Receipt Date: 20111101
  Transmission Date: 20120403
  Serious: Yes (Hospitalization)
  Sender: FDA-Public Use
  Company Number: PHEH2011US08371

PATIENT
  Sex: Female

DRUGS (6)
  1. PROTONIX [Concomitant]
  2. MACROBID [Concomitant]
     Indication: URINARY TRACT INFECTION
  3. TRAMADOL HCL [Concomitant]
  4. PAXIL [Concomitant]
  5. GILENYA [Suspect]
     Indication: MULTIPLE SCLEROSIS
     Dosage: 0.5 MG, QD
     Route: 048
     Dates: start: 20110429
  6. FAMPRIDINE [Concomitant]

REACTIONS (8)
  - LOSS OF CONSCIOUSNESS [None]
  - DIZZINESS [None]
  - COMA [None]
  - CYSTITIS [None]
  - NAUSEA [None]
  - VOMITING [None]
  - MALAISE [None]
  - ASTHENIA [None]
